FAERS Safety Report 4632914-1 (Version None)
Quarter: 2005Q2

REPORT INFORMATION
  Report Type: 
  Country: None (occurrence: None)
  Receive Date: 20050412
  Receipt Date: 20050401
  Transmission Date: 20051028
  Serious: Yes (Hospitalization, Disabling)
  Sender: FDA-Public Use
  Company Number: US-JNJFOC-20050203419

PATIENT
  Sex: Female
  Weight: 17.69 kg

DRUGS (5)
  1. CONCERTA [Suspect]
     Route: 049
  2. CONCERTA [Suspect]
     Route: 049
  3. CLONIDINE [Concomitant]
     Dosage: NIGHTLY
     Route: 049
  4. CLONIDINE [Concomitant]
     Dosage: NIGHTLY
     Route: 049
  5. CLONIDINE [Concomitant]
     Dosage: AT BEDTIME
     Route: 049

REACTIONS (2)
  - CEREBROVASCULAR ACCIDENT [None]
  - INJURY [None]
